FAERS Safety Report 9323436 (Version 2)
Quarter: 2013Q2

REPORT INFORMATION
  Report Type: Spontaneous
  Country: US (occurrence: US)
  Receive Date: 20130603
  Receipt Date: 20130621
  Transmission Date: 20140414
  Serious: No
  Sender: FDA-Public Use
  Company Number: US-PFIZER INC-2013164350

PATIENT
  Age: 71 Year
  Sex: Female
  Weight: 59.86 kg

DRUGS (8)
  1. SUTENT [Suspect]
     Indication: RENAL CANCER
     Dosage: 50 MG, DAILY (QD), CYCLIC, 4 WEEKS ON 2 WEEKS OFF
     Route: 048
     Dates: start: 20130325, end: 20130610
  2. METOPROLOL TARTRATE [Concomitant]
     Dosage: UNK
  3. ALLOPURINOL [Concomitant]
     Dosage: UNK
  4. MORPHINE [Concomitant]
     Dosage: UNK
  5. APAP [Concomitant]
     Dosage: UNK
  6. PEPCID [Concomitant]
     Dosage: UNK
  7. PROCHLORPERAZINE [Concomitant]
     Dosage: UNK
  8. MEGACE [Concomitant]
     Dosage: UNK

REACTIONS (2)
  - Pain in extremity [Unknown]
  - Rash [Unknown]
